FAERS Safety Report 24275713 (Version 1)
Quarter: 2024Q3

REPORT INFORMATION
  Report Type: Spontaneous
  Country: US (occurrence: US)
  Receive Date: 20240903
  Receipt Date: 20240903
  Transmission Date: 20241016
  Serious: Yes (Other)
  Sender: BRISTOL MYERS SQUIBB
  Company Number: US-BRISTOL-MYERS SQUIBB COMPANY-2024-138810

PATIENT
  Age: 82 Year
  Sex: Female

DRUGS (11)
  1. ELIQUIS [Suspect]
     Active Substance: APIXABAN
     Indication: Atrial fibrillation
     Route: 048
     Dates: start: 2018
  2. AMILORIDE [Concomitant]
     Active Substance: AMILORIDE
  3. AMIODARONE [Concomitant]
     Active Substance: AMIODARONE
  4. AMITRIPTYLINE [Concomitant]
     Active Substance: AMITRIPTYLINE
     Indication: Tarsal tunnel syndrome
  5. DILTIAZEM [Concomitant]
     Active Substance: DILTIAZEM
  6. ATORVASTATIN [Concomitant]
     Active Substance: ATORVASTATIN
  7. GLIMEPIRIDE [Concomitant]
     Active Substance: GLIMEPIRIDE
  8. LASIX [Concomitant]
     Active Substance: FUROSEMIDE
  9. LISINOPRIL [Concomitant]
     Active Substance: LISINOPRIL
  10. METOPROLOL TARTRATE [Concomitant]
     Active Substance: METOPROLOL TARTRATE
  11. VITAMINS NOS [Concomitant]
     Active Substance: VITAMINS

REACTIONS (1)
  - Cardiac valve disease [Unknown]
